FAERS Safety Report 25997503 (Version 2)
Quarter: 2025Q4

REPORT INFORMATION
  Report Type: Spontaneous
  Country: US (occurrence: US)
  Receive Date: 20251104
  Receipt Date: 20251127
  Transmission Date: 20260117
  Serious: No
  Sender: JOHNSON AND JOHNSON
  Company Number: US-JNJFOC-20251016329

PATIENT
  Sex: Female

DRUGS (1)
  1. TALVEY [Suspect]
     Active Substance: TALQUETAMAB-TGVS
     Indication: Plasma cell myeloma
     Route: 058
     Dates: start: 20231030

REACTIONS (6)
  - Onychomycosis [Unknown]
  - Nail discolouration [Unknown]
  - Onychomadesis [Unknown]
  - Pain [Unknown]
  - Dry skin [Recovered/Resolved]
  - Rash [Recovered/Resolved]

NARRATIVE: CASE EVENT DATE: 20231210
